FAERS Safety Report 4745725-3 (Version None)
Quarter: 2005Q3

REPORT INFORMATION
  Report Type: 
  Country: None (occurrence: None)
  Receive Date: 20050815
  Receipt Date: 20050815
  Transmission Date: 20060218
  Serious: No
  Sender: FDA-Public Use
  Company Number: None

PATIENT
  Age: 5 Month
  Sex: Female
  Weight: 7.7111 kg

DRUGS (2)
  1. INFANT PAIN RELIEF 160 MG PER 1.6 ML MEIJER DIST [Suspect]
     Indication: ANALGESIC EFFECT
     Dosage: 1.6 ML EVERY 4 HOURS ORAL
     Route: 048
  2. INFANT PAIN RELIEF 160 MG PER 1.6 ML MEIJER DIST [Suspect]
     Indication: PYREXIA
     Dosage: 1.6 ML EVERY 4 HOURS ORAL
     Route: 048

REACTIONS (1)
  - MEDICATION ERROR [None]
